FAERS Safety Report 5643102-4 (Version None)
Quarter: 2008Q1

REPORT INFORMATION
  Report Type: 
  Country: None (occurrence: None)
  Receive Date: 20080227
  Receipt Date: 20080227
  Transmission Date: 20080703
  Serious: Yes (Hospitalization)
  Sender: FDA-Public Use
  Company Number: None

PATIENT
  Age: 86 Year
  Sex: Female
  Weight: 85.9 kg

DRUGS (13)
  1. EXEMESTANE [Suspect]
     Indication: BREAST CANCER
     Dosage: 25MG DAILY PO
     Route: 048
     Dates: start: 20070918, end: 20080122
  2. WARFARIN SODIUM [Concomitant]
  3. DIGOXIN [Concomitant]
  4. HYDROCHLOROTHIAZIDE [Concomitant]
  5. ENALAPRIL MALEATE [Concomitant]
  6. MULTIVITAMIN WITH MINERAL SUPPLEMENTS [Concomitant]
  7. CALCIUM PLUS VITAMIN D [Concomitant]
  8. MSM [Concomitant]
  9. GLUCOSAMINE CHONDROITIN [Concomitant]
  10. VITAMIN B50 [Concomitant]
  11. VITAMIN B-12 [Concomitant]
  12. VITAMIN E [Concomitant]
  13. AROMASIN [Concomitant]

REACTIONS (2)
  - HAEMATOMA [None]
  - POST PROCEDURAL COMPLICATION [None]
